FAERS Safety Report 5188841-7 (Version None)
Quarter: 2006Q4

REPORT INFORMATION
  Report Type: 
  Country: None (occurrence: None)
  Receive Date: 20061215
  Receipt Date: 20061205
  Transmission Date: 20070319
  Serious: No
  Sender: FDA-Public Use
  Company Number: NXG PC-0001

PATIENT
  Age: 60 Year
  Sex: Female

DRUGS (2)
  1. POLYETHYLENE GLYCOL [Suspect]
     Indication: CONSTIPATION
     Dosage: 17 GM IN 8 OZ WATER/DAY ORAL (047)
     Route: 048
     Dates: start: 20061122
  2. CHEMOTHERAPEUTIC AGENTS [Concomitant]

REACTIONS (5)
  - ABDOMINAL DISCOMFORT [None]
  - DRY MOUTH [None]
  - DRY THROAT [None]
  - OEDEMA PERIPHERAL [None]
  - THROAT IRRITATION [None]
